APPROVED DRUG PRODUCT: ISOFLURANE
Active Ingredient: ISOFLURANE
Strength: 99.9%
Dosage Form/Route: LIQUID;INHALATION
Application: A074393 | Product #001
Applicant: WATSON LABORATORIES INC
Approved: May 12, 1995 | RLD: No | RS: No | Type: DISCN